FAERS Safety Report 8530304-2 (Version None)
Quarter: 2012Q3

REPORT INFORMATION
  Report Type: 
  Country: None (occurrence: None)
  Receive Date: 20120723
  Receipt Date: 20120718
  Transmission Date: 20120928
  Serious: Yes (Other)
  Sender: FDA-Public Use
  Company Number: US-PFIZER INC-2012174673

PATIENT
  Sex: Male
  Weight: 99.3 kg

DRUGS (3)
  1. NIFEDIPINE [Concomitant]
     Indication: BLOOD PRESSURE ABNORMAL
     Dosage: 60 MG, DAILY
  2. SUTENT [Suspect]
     Indication: RENAL CELL CARCINOMA
     Dosage: 50 MG, DAILY
  3. LISINOPRIL [Concomitant]
     Indication: BLOOD PRESSURE ABNORMAL
     Dosage: 20 MG, DAILY

REACTIONS (3)
  - DRUG DEPENDENCE [None]
  - MUSCLE SPASMS [None]
  - VITAMIN B12 DECREASED [None]
